FAERS Safety Report 8548186-1 (Version None)
Quarter: 2012Q3

REPORT INFORMATION
  Report Type: 
  Country: None (occurrence: None)
  Receive Date: 20120730
  Receipt Date: 20120719
  Transmission Date: 20120928
  Serious: Yes (Other)
  Sender: FDA-Public Use
  Company Number: US-BIOGENIDEC-2012BI026321

PATIENT
  Age: 44 Year
  Sex: Female

DRUGS (7)
  1. COPAXONE [Concomitant]
  2. SOLU-MEDROL [Concomitant]
  3. STEROIDS [Concomitant]
  4. CHEMOTHERAPY [Concomitant]
  5. AVONEX [Suspect]
     Indication: MULTIPLE SCLEROSIS
     Route: 030
  6. BETASERON [Concomitant]
  7. METHOTHEXATE [Concomitant]

REACTIONS (6)
  - DIABETES MELLITUS [None]
  - CENTRAL NERVOUS SYSTEM INFECTION [None]
  - SINUSITIS [None]
  - HYPERTENSION [None]
  - EAR NEOPLASM MALIGNANT [None]
  - WEIGHT DECREASED [None]
